FAERS Safety Report 25702392 (Version 2)
Quarter: 2025Q4

REPORT INFORMATION
  Report Type: Spontaneous
  Country: US (occurrence: US)
  Receive Date: 20250819
  Receipt Date: 20251010
  Transmission Date: 20260118
  Serious: No
  Sender: CALLIDITAS THERAPEUTICS AB
  Company Number: US-Calliditas-2025CAL02405

PATIENT
  Age: 40 Year
  Sex: Female

DRUGS (6)
  1. TARPEYO [Suspect]
     Active Substance: BUDESONIDE
     Indication: IgA nephropathy
     Route: 048
     Dates: start: 20250625
  2. CALCITRIOL [Concomitant]
     Active Substance: CALCITRIOL
  3. FISH OIL [Concomitant]
     Active Substance: FISH OIL
  4. LOSARTAN [Concomitant]
     Active Substance: LOSARTAN
  5. SEVELAMER [Concomitant]
     Active Substance: SEVELAMER
  6. VITAMIN D2 [Concomitant]
     Active Substance: ERGOCALCIFEROL

REACTIONS (5)
  - Contusion [Not Recovered/Not Resolved]
  - Blood pressure increased [Unknown]
  - Peripheral swelling [Unknown]
  - Polymenorrhoea [Unknown]
  - Heavy menstrual bleeding [Unknown]
